FAERS Safety Report 8489777-6 (Version None)
Quarter: 2012Q3

REPORT INFORMATION
  Report Type: 
  Country: None (occurrence: None)
  Receive Date: 20120705
  Receipt Date: 20120626
  Transmission Date: 20120928
  Serious: Yes (Other)
  Sender: FDA-Public Use
  Company Number: JP-VERTEX PHARMACEUTICALS INC.-AE-2012-009618

PATIENT
  Age: 63 Year
  Sex: Male

DRUGS (9)
  1. TELAVIC (TELAPREVIR) [Suspect]
     Indication: HEPATITIS C
     Route: 048
     Dates: start: 20120404
  2. LENDORMIN [Concomitant]
     Route: 048
  3. XYZAL [Concomitant]
     Route: 048
  4. DIGOXIN [Concomitant]
     Route: 048
  5. SELBEX [Concomitant]
     Route: 048
  6. REBETOL [Concomitant]
     Route: 048
     Dates: start: 20120509
  7. WARFARIN SODIUM [Concomitant]
     Route: 048
  8. REBETOL [Concomitant]
     Indication: HEPATITIS C
     Route: 048
     Dates: start: 20120404, end: 20120508
  9. PEG-INTRON [Concomitant]
     Indication: HEPATITIS C
     Route: 058
     Dates: start: 20120404

REACTIONS (1)
  - OPTIC NERVE DISORDER [None]
